FAERS Safety Report 13921432 (Version 1)
Quarter: 2017Q3

REPORT INFORMATION
  Report Type: Spontaneous
  Country: US (occurrence: US)
  Receive Date: 20170830
  Receipt Date: 20170830
  Transmission Date: 20171127
  Serious: Yes (Death)
  Sender: FDA-Public Use
  Company Number: US-JNJFOC-20170826929

PATIENT
  Sex: Male
  Weight: 52 kg

DRUGS (13)
  1. BIFIDOBACTERIUM LACTIS [Concomitant]
     Active Substance: BIFIDOBACTERIUM ANIMALIS LACTIS
  2. CALCIUM CITRATE [Concomitant]
     Active Substance: CALCIUM CITRATE
  3. METOPROLOL. [Concomitant]
     Active Substance: METOPROLOL
  4. SYNTHROID [Concomitant]
     Active Substance: LEVOTHYROXINE SODIUM
  5. VITAL D RX [Concomitant]
  6. ZETIA [Concomitant]
     Active Substance: EZETIMIBE
  7. AMLODIPINE [Concomitant]
     Active Substance: AMLODIPINE BESYLATE
  8. IMBRUVICA [Suspect]
     Active Substance: IBRUTINIB
     Indication: CHRONIC LYMPHOCYTIC LEUKAEMIA
     Route: 048
     Dates: start: 20170407
  9. IRBESARTAN. [Concomitant]
     Active Substance: IRBESARTAN
  10. ONDANSETRON [Concomitant]
     Active Substance: ONDANSETRON
  11. ZYLOPRIM [Concomitant]
     Active Substance: ALLOPURINOL
  12. PERCOCET [Concomitant]
     Active Substance: ACETAMINOPHEN\OXYCODONE HYDROCHLORIDE
  13. RANITIDINE. [Concomitant]
     Active Substance: RANITIDINE

REACTIONS (1)
  - Death [Fatal]
